FAERS Safety Report 5100921-0 (Version None)
Quarter: 2006Q3

REPORT INFORMATION
  Report Type: 
  Country: None (occurrence: None)
  Receive Date: 20060906
  Receipt Date: 20060823
  Transmission Date: 20061208
  Serious: Yes (Life-Threatening, Hospitalization, Other)
  Sender: FDA-Public Use
  Company Number: 2006102970

PATIENT
  Age: 49 Year
  Sex: Male
  Weight: 128.1412 kg

DRUGS (3)
  1. VIAGRA [Suspect]
     Indication: ERECTILE DYSFUNCTION
     Dosage: (25 MG)
  2. DRUG USED IN DIABETES (DRUG USED IN DIABETES) [Concomitant]
  3. ANTIHYPERTENSIVES (ANTIHYPERTENSIVES) [Concomitant]

REACTIONS (5)
  - CEREBROVASCULAR ACCIDENT [None]
  - COMA [None]
  - CORONARY ARTERY OCCLUSION [None]
  - DRUG INEFFECTIVE [None]
  - FATIGUE [None]
